FAERS Safety Report 22593994 (Version 1)
Quarter: 2023Q2

REPORT INFORMATION
  Report Type: Spontaneous
  Country: US (occurrence: None)
  Receive Date: 20230612
  Receipt Date: 20230612
  Transmission Date: 20230722
  Serious: No
  Sender: FDA-Public Use
  Company Number: None

PATIENT
  Sex: Male

DRUGS (21)
  1. ABIRATERONE ACETATE [Suspect]
     Active Substance: ABIRATERONE ACETATE
     Indication: Prostate cancer
     Dosage: FREQUENCY : DAILY;?
     Route: 048
     Dates: start: 20211118
  2. PREDNISONE [Concomitant]
     Active Substance: PREDNISONE
  3. ZYTIGA [Concomitant]
     Active Substance: ABIRATERONE ACETATE
  4. CALCIUM [Concomitant]
     Active Substance: CALCIUM
  5. CLOPIDOGREL [Concomitant]
     Active Substance: CLOPIDOGREL BISULFATE
  6. DORZOLAMIDE [Concomitant]
     Active Substance: DORZOLAMIDE
  7. LATANOPROST [Concomitant]
     Active Substance: LATANOPROST
  8. LOVASTATIN [Concomitant]
     Active Substance: LOVASTATIN
  9. METOPROLOL [Concomitant]
     Active Substance: METOPROLOL
  10. ONE-A-DAY MENS [Concomitant]
  11. VITAMIN B12 [Concomitant]
     Active Substance: CYANOCOBALAMIN
  12. VITAMIN C [Concomitant]
     Active Substance: ASCORBIC ACID
  13. VITAMIN D3 [Concomitant]
  14. ZINC [Concomitant]
     Active Substance: ZINC
  15. METAMUCIL [Concomitant]
     Active Substance: PLANTAGO SEED
  16. MIRALAX [Concomitant]
     Active Substance: POLYETHYLENE GLYCOL 3350
  17. GOODSENSE [Concomitant]
  18. IBUPROFEN [Concomitant]
     Active Substance: IBUPROFEN
  19. CVS SENNA [Concomitant]
  20. AMOXICILLIN [Suspect]
     Active Substance: AMOXICILLIN
  21. LAGEVRIO [Concomitant]
     Active Substance: MOLNUPIRAVIR

REACTIONS (1)
  - Hospice care [None]
